FAERS Safety Report 19284156 (Version 1)
Quarter: 2021Q2

REPORT INFORMATION
  Report Type: Spontaneous
  Country: US (occurrence: US)
  Receive Date: 20210521
  Receipt Date: 20210521
  Transmission Date: 20210717
  Serious: No
  Sender: FDA-Public Use
  Company Number: None

PATIENT
  Age: 87 Year
  Sex: Female
  Weight: 68 kg

DRUGS (11)
  1. PLAVIX [Concomitant]
     Active Substance: CLOPIDOGREL BISULFATE
  2. ENBREL [Concomitant]
     Active Substance: ETANERCEPT
  3. IMDUR [Concomitant]
     Active Substance: ISOSORBIDE MONONITRATE
  4. LIPITOR [Concomitant]
     Active Substance: ATORVASTATIN CALCIUM
  5. DOVONEX [Concomitant]
     Active Substance: CALCIPOTRIENE
  6. LEVOTHYROXINE SODIUM. [Concomitant]
     Active Substance: LEVOTHYROXINE SODIUM
  7. IBRANCE [Suspect]
     Active Substance: PALBOCICLIB
     Indication: BREAST CANCER
     Route: 048
     Dates: start: 20210429, end: 20210520
  8. LATANOPROST. [Concomitant]
     Active Substance: LATANOPROST
  9. FEMARA [Concomitant]
     Active Substance: LETROZOLE
  10. LISINOPRIL. [Concomitant]
     Active Substance: LISINOPRIL
  11. TRIAMCINOLONE ACETONIDE. [Concomitant]
     Active Substance: TRIAMCINOLONE ACETONIDE

REACTIONS (3)
  - White blood cell count decreased [None]
  - Liver function test increased [None]
  - Oral mucosal blistering [None]

NARRATIVE: CASE EVENT DATE: 20210520
